FAERS Safety Report 5706402-5 (Version None)
Quarter: 2008Q2

REPORT INFORMATION
  Report Type: 
  Country: None (occurrence: None)
  Receive Date: 20080411
  Receipt Date: 20080328
  Transmission Date: 20081010
  Serious: Yes (Disabling)
  Sender: FDA-Public Use
  Company Number: 2008S1005694

PATIENT
  Age: 36 Year
  Sex: Female

DRUGS (1)
  1. PIROXICAM [Suspect]
     Indication: RHEUMATOID ARTHRITIS
     Dosage: 20 MG;ONCE;ORAL
     Route: 048

REACTIONS (7)
  - FOREIGN BODY TRAUMA [None]
  - GASTRIC ULCER [None]
  - OESOPHAGEAL ULCER [None]
  - ORAL ADMINISTRATION COMPLICATION [None]
  - ORAL INTAKE REDUCED [None]
  - PHARYNGOLARYNGEAL PAIN [None]
  - WEIGHT DECREASED [None]
